FAERS Safety Report 7409073-5 (Version None)
Quarter: 2011Q2

REPORT INFORMATION
  Report Type: 
  Country: None (occurrence: None)
  Receive Date: 20110412
  Receipt Date: 20110331
  Transmission Date: 20111010
  Serious: Yes (Hospitalization)
  Sender: FDA-Public Use
  Company Number: DE-SANOFI-AVENTIS-2011SA016729

PATIENT
  Age: 66 Year
  Sex: Female
  Weight: 87 kg

DRUGS (6)
  1. DEXAMETHASONE [Suspect]
     Route: 042
     Dates: start: 20110316, end: 20110316
  2. ZOFRAN [Suspect]
     Route: 042
     Dates: start: 20110316
  3. EUTHYROX [Concomitant]
     Dates: end: 20110301
  4. CYCLOPHOSPHAMIDE [Suspect]
     Indication: BREAST CANCER
     Route: 041
     Dates: start: 20110316, end: 20110316
  5. DOCETAXEL [Suspect]
     Indication: BREAST CANCER
     Route: 041
     Dates: start: 20110316, end: 20110316
  6. DEXAMETHASONE [Suspect]
     Route: 048
     Dates: start: 20110315, end: 20110315

REACTIONS (2)
  - PULMONARY EMBOLISM [None]
  - PULMONARY HYPERTENSION [None]
